FAERS Safety Report 4445400-9 (Version None)
Quarter: 2004Q3

REPORT INFORMATION
  Report Type: 
  Country: None (occurrence: None)
  Receive Date: 20040730
  Receipt Date: 20040402
  Transmission Date: 20050211
  Serious: Yes (Other)
  Sender: FDA-Public Use
  Company Number: 138567USA

PATIENT
  Age: 40 Year
  Sex: Female

DRUGS (7)
  1. AMOXICILLIN AND CLAVULANATE POTASSIUM [Suspect]
     Dosage: 500 MG BID ORAL
     Route: 048
     Dates: start: 20040306
  2. LAMICTAL [Suspect]
     Indication: EPILEPSY
     Dosage: 175 MG BID ORAL
     Route: 048
     Dates: start: 20020101
  3. CALCIUM [Concomitant]
  4. VITAMIN E [Concomitant]
  5. VITAMIN B6 [Concomitant]
  6. MULTI-VITAMINS [Concomitant]
  7. FOLATE [Concomitant]

REACTIONS (1)
  - CONVULSION [None]
